FAERS Safety Report 4950369-4 (Version None)
Quarter: 2006Q1

REPORT INFORMATION
  Report Type: 
  Country: None (occurrence: None)
  Receive Date: 20060316
  Receipt Date: 20060306
  Transmission Date: 20060701
  Serious: Yes (Other)
  Sender: FDA-Public Use
  Company Number: 2006026126

PATIENT
  Sex: Female

DRUGS (1)
  1. ARTHROTEC [Suspect]
     Indication: ILL-DEFINED DISORDER
     Dosage: ORAL
     Route: 048

REACTIONS (2)
  - ENDOMETRIAL HYPERPLASIA [None]
  - MENORRHAGIA [None]
